FAERS Safety Report 4310808-9 (Version None)
Quarter: 2004Q1

REPORT INFORMATION
  Report Type: 
  Country: None (occurrence: None)
  Receive Date: 20040302
  Receipt Date: 20040223
  Transmission Date: 20041129
  Serious: Yes (Hospitalization)
  Sender: FDA-Public Use
  Company Number: US-JNJFOC-20040205147

PATIENT
  Age: 59 Year
  Sex: Female
  Weight: 68.0396 kg

DRUGS (11)
  1. REMICADE [Suspect]
     Indication: RHEUMATOID ARTHRITIS
     Dosage: INTRAVENOUS
     Route: 042
     Dates: start: 20010503
  2. KLOR-CON [Concomitant]
  3. WARFARIN SODIUM [Concomitant]
  4. HYDROCHLOROTHIAZIDE [Concomitant]
  5. ATENOLOL [Concomitant]
  6. FOLIC ACID [Concomitant]
  7. ADALAT [Concomitant]
  8. PROPOX (DEXTROPROPOXYPHENE) TABLETS [Concomitant]
  9. VITAMIN C (ASCORBIC ACID) [Concomitant]
  10. VITAMIN E [Concomitant]
  11. MULTIVITAMIN (MULTIVITAMINS) [Concomitant]

REACTIONS (4)
  - BIOPSY LIVER ABNORMAL [None]
  - GASTROOESOPHAGEAL REFLUX DISEASE [None]
  - LIVER FUNCTION TEST ABNORMAL [None]
  - OESOPHAGITIS [None]
